FAERS Safety Report 7458912-0 (Version None)
Quarter: 2011Q2

REPORT INFORMATION
  Report Type: 
  Country: None (occurrence: None)
  Receive Date: 20110426
  Receipt Date: 20110415
  Transmission Date: 20111010
  Serious: Yes (Other)
  Sender: FDA-Public Use
  Company Number: FK201100781

PATIENT
  Sex: Male

DRUGS (5)
  1. FLUOROURACIL [Suspect]
     Indication: BREAST CANCER
     Dosage: TRANSPLACENTAL
     Route: 064
  2. METHOTREXATE [Suspect]
     Indication: BREAST CANCER
  3. DOXORUBICIN HYDROCHLORIDE [Suspect]
     Indication: BREAST CANCER
     Dosage: TRANSPLACENTAL
     Route: 064
  4. CYCLOPHOSPHAMIDE [Suspect]
     Indication: BREAST CANCER
     Dosage: TRANSPLACENTAL
     Route: 064
  5. EPIRUBICIN [Suspect]
     Indication: BREAST CANCER
     Dosage: TRANSPLACENTAL
     Route: 064

REACTIONS (2)
  - HAEMANGIOMA CONGENITAL [None]
  - MATERNAL DRUGS AFFECTING FOETUS [None]
